FAERS Safety Report 6812578-9 (Version None)
Quarter: 2010Q3

REPORT INFORMATION
  Report Type: 
  Country: None (occurrence: None)
  Receive Date: 20100701
  Receipt Date: 20100621
  Transmission Date: 20110219
  Serious: Yes (Other)
  Sender: FDA-Public Use
  Company Number: SE-PFIZER INC-2010076883

PATIENT
  Age: 31 Year
  Sex: Female

DRUGS (9)
  1. ZELDOX [Suspect]
     Indication: GENERALISED ANXIETY DISORDER
     Dosage: 40 MG, 2X/DAY
     Dates: start: 20100101
  2. ZELDOX [Suspect]
     Indication: INSOMNIA
     Dosage: 20 MG, 1X/DAY
     Route: 048
     Dates: start: 20090309
  3. ZELDOX [Suspect]
     Indication: SELF INJURIOUS BEHAVIOUR
     Dosage: 20 MG, 2X/DAY
  4. ZELDOX [Suspect]
  5. LYRICA [Suspect]
     Indication: GENERALISED ANXIETY DISORDER
     Dosage: 175 MG, 2X/DAY
     Route: 048
     Dates: start: 20080509, end: 20100401
  6. CIPRALEX [Concomitant]
     Dosage: 20 MG, 1X/DAY
     Dates: start: 20081024
  7. BUPROPION [Concomitant]
     Dosage: 150 MG, 1X/DAY
     Dates: start: 20090330
  8. ZOPICLONE [Concomitant]
     Dosage: 5 MG, AS NEEDED
  9. DIAZEPAM [Concomitant]
     Dosage: 5 MG, AS NEEDED

REACTIONS (5)
  - ACNE [None]
  - MENTAL DISORDER [None]
  - PHOTOSENSITIVITY REACTION [None]
  - PRURITUS [None]
  - SCAR [None]
